FAERS Safety Report 4347689-3 (Version None)
Quarter: 2004Q1

REPORT INFORMATION
  Report Type: 
  Country: None (occurrence: None)
  Receive Date: 20040325
  Receipt Date: 20040123
  Transmission Date: 20041129
  Serious: No
  Sender: FDA-Public Use
  Company Number: USA040157447

PATIENT
  Age: 74 Year
  Sex: Male

DRUGS (1)
  1. FORTEO [Suspect]
     Indication: OSTEOPOROSIS
     Dates: start: 20031201

REACTIONS (5)
  - ASTHENIA [None]
  - DYSKINESIA [None]
  - ILL-DEFINED DISORDER [None]
  - MUSCLE CRAMP [None]
  - MYALGIA [None]
